FAERS Safety Report 5297416-0 (Version None)
Quarter: 2007Q2

REPORT INFORMATION
  Report Type: 
  Country: None (occurrence: None)
  Receive Date: 20070409
  Receipt Date: 20070330
  Transmission Date: 20071010
  Serious: Yes (Hospitalization)
  Sender: FDA-Public Use
  Company Number: S07-FRA-01470-01

PATIENT
  Age: 50 Year
  Sex: Female

DRUGS (6)
  1. ESCITALOPRAM [Suspect]
     Dates: start: 20070106, end: 20070122
  2. MOPRAL (OMEPRAZOLE) [Suspect]
     Dates: start: 20070103, end: 20070122
  3. ZYPREXA [Suspect]
     Dates: start: 20070104, end: 20070122
  4. CEFPODOXIME PROXETIL [Suspect]
     Dates: start: 20070112, end: 20070122
  5. ACTIVELLA [Suspect]
     Dates: start: 20070112, end: 20070122
  6. CLARADOL CAFFEINE [Suspect]
     Dates: start: 20070112, end: 20070122

REACTIONS (7)
  - ABDOMINAL PAIN UPPER [None]
  - CYTOLYTIC HEPATITIS [None]
  - DIARRHOEA [None]
  - JAUNDICE [None]
  - NAUSEA [None]
  - PRURITUS [None]
  - PYREXIA [None]
